FAERS Safety Report 7429057-0 (Version None)
Quarter: 2011Q2

REPORT INFORMATION
  Report Type: 
  Country: None (occurrence: None)
  Receive Date: 20110421
  Receipt Date: 20110418
  Transmission Date: 20111010
  Serious: No
  Sender: FDA-Public Use
  Company Number: US-ASTRAZENECA-2008UW09544

PATIENT
  Sex: Male
  Weight: 147.4 kg

DRUGS (4)
  1. SEROQUEL [Suspect]
     Indication: SCHIZOPHRENIA
     Dosage: 50 TO 600 MG DAILY
     Route: 048
     Dates: start: 20040401, end: 20080201
  2. SEROQUEL [Suspect]
     Indication: DEPRESSION
     Dosage: 50 TO 600 MG DAILY
     Route: 048
     Dates: start: 20040401, end: 20080201
  3. SEROQUEL [Suspect]
     Indication: BIPOLAR DISORDER
     Dosage: 50 TO 600 MG DAILY
     Route: 048
     Dates: start: 20040401, end: 20080201
  4. SEROQUEL [Suspect]
     Indication: SCHIZOAFFECTIVE DISORDER
     Dosage: 50 TO 600 MG DAILY
     Route: 048
     Dates: start: 20040401, end: 20080201

REACTIONS (1)
  - TYPE 2 DIABETES MELLITUS [None]
